FAERS Safety Report 15464168 (Version 1)
Quarter: 2018Q4

REPORT INFORMATION
  Report Type: Spontaneous
  Country: US (occurrence: US)
  Receive Date: 20181001
  Receipt Date: 20181001
  Transmission Date: 20190204
  Serious: Yes (Life-Threatening, Hospitalization)
  Sender: FDA-Public Use
  Company Number: None

PATIENT
  Age: 72 Year
  Sex: Male
  Weight: 120 kg

DRUGS (1)
  1. INSULIN [Suspect]
     Active Substance: INSULIN NOS
     Indication: DIABETES MELLITUS
     Route: 058
     Dates: start: 20170601

REACTIONS (10)
  - Dizziness [None]
  - Chest injury [None]
  - Musculoskeletal chest pain [None]
  - Headache [None]
  - Confusional state [None]
  - Fall [None]
  - Blood glucose decreased [None]
  - Arthralgia [None]
  - Head injury [None]
  - Joint injury [None]

NARRATIVE: CASE EVENT DATE: 20180829
